FAERS Safety Report 5288236-1 (Version None)
Quarter: 2007Q1

REPORT INFORMATION
  Report Type: 
  Country: None (occurrence: None)
  Receive Date: 20070330
  Receipt Date: 20070321
  Transmission Date: 20070707
  Serious: Yes (Hospitalization)
  Sender: FDA-Public Use
  Company Number: 230668

PATIENT
  Age: 67 Year
  Sex: Female
  Weight: 76 kg

DRUGS (1)
  1. MABTHERA(RITUXIMAB) CONC FOR SOLUTION FOR INFUSION [Suspect]
     Indication: RHEUMATOID ARTHRITIS
     Dosage: 1 G, INTRAVENOUS
     Route: 042
     Dates: start: 20060914, end: 20060914

REACTIONS (3)
  - ATRIOVENTRICULAR BLOCK [None]
  - FACE OEDEMA [None]
  - INFUSION RELATED REACTION [None]
